FAERS Safety Report 8541148-X (Version None)
Quarter: 2012Q3

REPORT INFORMATION
  Report Type: 
  Country: None (occurrence: None)
  Receive Date: 20120726
  Receipt Date: 20120711
  Transmission Date: 20120928
  Serious: Yes (Hospitalization)
  Sender: FDA-Public Use
  Company Number: US-JNJFOC-20120710378

PATIENT
  Age: 66 Year
  Sex: Male
  Weight: 94.5 kg

DRUGS (3)
  1. IBUPROFEN [Suspect]
     Indication: RHEUMATOID ARTHRITIS
     Dosage: 800MG, THRICE A DAY
     Route: 048
     Dates: start: 20100304
  2. IBUPROFEN [Suspect]
     Indication: OSTEOARTHRITIS
     Dosage: 800MG, THRICE A DAY
     Route: 048
     Dates: start: 20100304
  3. NEXIUM [Concomitant]
     Indication: PROPHYLAXIS
     Route: 048
     Dates: start: 20100304

REACTIONS (2)
  - GASTROENTERITIS [None]
  - DEHYDRATION [None]
